FAERS Safety Report 5125146-4 (Version None)
Quarter: 2006Q4

REPORT INFORMATION
  Report Type: 
  Country: None (occurrence: None)
  Receive Date: 20061006
  Receipt Date: 20051020
  Transmission Date: 20070319
  Serious: Yes (Hospitalization)
  Sender: FDA-Public Use
  Company Number: 2005BH002599

PATIENT
  Age: 32 Year
  Sex: Male

DRUGS (3)
  1. LORAZEPAM [Suspect]
     Indication: DRUG USE FOR UNKNOWN INDICATION
     Dosage: 6 MG
     Dates: start: 20050823, end: 20050823
  2. HALDOL [Suspect]
     Indication: DRUG USE FOR UNKNOWN INDICATION
     Dosage: 15 MG
     Dates: start: 20050823, end: 20050823
  3. COMBIVENT /GFR/ [Concomitant]

REACTIONS (4)
  - ATRIOVENTRICULAR BLOCK THIRD DEGREE [None]
  - CONVULSION [None]
  - FALL [None]
  - SKIN LACERATION [None]
